FAERS Safety Report 7069332-5 (Version None)
Quarter: 2010Q4

REPORT INFORMATION
  Report Type: 
  Country: None (occurrence: None)
  Receive Date: 20101028
  Receipt Date: 20100918
  Transmission Date: 20110411
  Serious: Yes (Life-Threatening, Hospitalization, Other)
  Sender: FDA-Public Use
  Company Number: US-BAXTER-2010BH024041

PATIENT
  Sex: Male

DRUGS (2)
  1. HEPARIN SODIUM INJECTION [Suspect]
     Indication: MYOCARDIAL INFARCTION
     Route: 042
     Dates: start: 20071129, end: 20071204
  2. HEPARIN SODIUM INJECTION [Suspect]
     Route: 042
     Dates: start: 20080103, end: 20080118

REACTIONS (9)
  - BEDRIDDEN [None]
  - CARDIOMEGALY [None]
  - CHEST DISCOMFORT [None]
  - CHEST PAIN [None]
  - DYSPNOEA [None]
  - DYSPNOEA EXERTIONAL [None]
  - MYOCARDIAL INFARCTION [None]
  - ORGAN FAILURE [None]
  - PAIN [None]
